FAERS Safety Report 21456570 (Version 2)
Quarter: 2022Q4

REPORT INFORMATION
  Report Type: Spontaneous
  Country: GB (occurrence: GB)
  Receive Date: 20221014
  Receipt Date: 20221027
  Transmission Date: 20230113
  Serious: Yes (Other)
  Sender: FDA-Public Use
  Company Number: GB-CELLTRION INC.-2022GB016866

PATIENT

DRUGS (1)
  1. INFLIXIMAB [Suspect]
     Active Substance: INFLIXIMAB
     Indication: Product used for unknown indication
     Dosage: 120 MG EVERY 2 WEEKS
     Route: 058
     Dates: start: 20220920

REACTIONS (8)
  - Diarrhoea [Recovering/Resolving]
  - Malaise [Recovering/Resolving]
  - Abdominal pain [Recovering/Resolving]
  - Abdominal distension [Recovering/Resolving]
  - Nasopharyngitis [Recovering/Resolving]
  - Cough [Recovering/Resolving]
  - Chest pain [Recovering/Resolving]
  - Intentional dose omission [Recovering/Resolving]
